FAERS Safety Report 11882170 (Version 1)
Quarter: 2015Q4

REPORT INFORMATION
  Report Type: Spontaneous
  Country: FR (occurrence: FR)
  Receive Date: 20151231
  Receipt Date: 20151231
  Transmission Date: 20160305
  Serious: Yes (Hospitalization)
  Sender: FDA-Public Use
  Company Number: FR-SA-2015SA220719

PATIENT
  Age: 85 Year
  Sex: Male

DRUGS (7)
  1. TANAKAN [Concomitant]
     Active Substance: GINKGO
  2. DAFLON [Concomitant]
     Active Substance: DIOSMIN\HESPERIDIN
  3. LOVENOX [Suspect]
     Active Substance: ENOXAPARIN SODIUM
     Route: 042
  4. ORNIDAZOLE [Concomitant]
     Active Substance: ORNIDAZOLE
  5. TENORMIN [Concomitant]
     Active Substance: ATENOLOL
  6. AMIKLIN [Concomitant]
     Active Substance: AMIKACIN SULFATE
  7. KARDEGIC [Concomitant]
     Active Substance: ASPIRIN LYSINE

REACTIONS (2)
  - Heparin-induced thrombocytopenia test positive [Recovering/Resolving]
  - Heparin-induced thrombocytopenia [Recovering/Resolving]

NARRATIVE: CASE EVENT DATE: 20150410
